FAERS Safety Report 6663307-3 (Version None)
Quarter: 2010Q2

REPORT INFORMATION
  Report Type: 
  Country: None (occurrence: None)
  Receive Date: 20100401
  Receipt Date: 20100317
  Transmission Date: 20101027
  Serious: Yes (Hospitalization)
  Sender: FDA-Public Use
  Company Number: NL-MEDIMMUNE-MEDI-0010879

PATIENT
  Sex: Male

DRUGS (1)
  1. SYNAGIS [Suspect]
     Route: 030
     Dates: start: 20091230, end: 20100128

REACTIONS (5)
  - DYSPNOEA [None]
  - NASOPHARYNGITIS [None]
  - PYREXIA [None]
  - RESPIRATORY SYNCYTIAL VIRUS INFECTION [None]
  - VACCINATION COMPLICATION [None]
